FAERS Safety Report 4536208-4 (Version None)
Quarter: 2004Q4

REPORT INFORMATION
  Report Type: 
  Country: None (occurrence: None)
  Receive Date: 20041223
  Receipt Date: 20041214
  Transmission Date: 20050328
  Serious: Yes (Hospitalization)
  Sender: FDA-Public Use
  Company Number: GB-GLAXOSMITHKLINE-B0361883A

PATIENT
  Age: 72 Year
  Sex: Male
  Weight: 98 kg

DRUGS (10)
  1. AVANDIA [Suspect]
     Dosage: 4MG UNKNOWN
     Route: 048
     Dates: start: 20031101, end: 20041101
  2. AMITRIPTYLINE [Concomitant]
     Indication: PAIN
     Dosage: 25MG PER DAY
     Route: 048
     Dates: start: 20030101
  3. ADALAT CC [Concomitant]
     Dosage: 30MG PER DAY
     Route: 048
     Dates: start: 20030101
  4. GLICLAZIDE [Concomitant]
     Indication: DIABETES MELLITUS
     Dosage: 180NG TWICE PER DAY
     Route: 048
     Dates: start: 20030101
  5. LOSARTAN [Concomitant]
     Dosage: 25MG PER DAY
     Route: 048
     Dates: start: 20030101
  6. QUININE [Concomitant]
     Indication: NIGHT CRAMPS
     Dosage: 300MG PER DAY
     Route: 048
     Dates: start: 20030101
  7. CLOPIDOGREL [Concomitant]
     Indication: ANTIPLATELET THERAPY
     Dosage: 75MG PER DAY
     Route: 048
     Dates: start: 20030101
  8. EPOETIN BETA [Concomitant]
     Dosage: 4000UNIT WEEKLY
     Route: 058
     Dates: start: 20040101
  9. FERROUS SULFATE TAB [Concomitant]
     Dosage: 200MG THREE TIMES PER DAY
     Route: 048
     Dates: start: 20040101
  10. FRUSEMIDE [Concomitant]
     Indication: FLUID RETENTION
     Dosage: 40MG PER DAY
     Route: 048
     Dates: start: 20040401

REACTIONS (8)
  - BREAST SWELLING [None]
  - CARDIAC FAILURE [None]
  - CARDIOMEGALY [None]
  - CREPITATIONS [None]
  - DYSPNOEA [None]
  - OEDEMA PERIPHERAL [None]
  - PULMONARY OEDEMA [None]
  - VENOUS PRESSURE JUGULAR INCREASED [None]
